FAERS Safety Report 6360241-3 (Version None)
Quarter: 2009Q3

REPORT INFORMATION
  Report Type: 
  Country: None (occurrence: None)
  Receive Date: 20090917
  Receipt Date: 20090914
  Transmission Date: 20100115
  Serious: Yes (Death)
  Sender: FDA-Public Use
  Company Number: BE-ABBOTT-09P-013-0591608-00

PATIENT
  Sex: Male
  Weight: 71 kg

DRUGS (2)
  1. LUCRIN DEPOT [Suspect]
     Indication: PROSTATE CANCER
     Dates: start: 20061213
  2. LUCRIN DEPOT 11.25 MG [Suspect]
     Indication: PROSTATE CANCER

REACTIONS (3)
  - COMA [None]
  - DISEASE PROGRESSION [None]
  - PROSTATIC SPECIFIC ANTIGEN ABNORMAL [None]
